FAERS Safety Report 23217637 (Version 4)
Quarter: 2024Q1

REPORT INFORMATION
  Report Type: Spontaneous
  Country: US (occurrence: US)
  Receive Date: 20231122
  Receipt Date: 20240308
  Transmission Date: 20240410
  Serious: Yes (Other)
  Sender: FDA-Public Use
  Company Number: US-PFIZER INC-202300376585

PATIENT
  Age: 56 Year
  Sex: Female
  Weight: 55.79 kg

DRUGS (1)
  1. OXBRYTA [Suspect]
     Active Substance: VOXELOTOR
     Indication: Sickle cell disease
     Dosage: 3 TABLETS AT NIGHT
     Route: 048
     Dates: start: 202001

REACTIONS (7)
  - Parathyroid tumour [Unknown]
  - Thyroidectomy [Unknown]
  - Fatigue [Unknown]
  - Decreased appetite [Unknown]
  - Pain [Unknown]
  - Influenza [Unknown]
  - Cough [Unknown]

NARRATIVE: CASE EVENT DATE: 20221201
